FAERS Safety Report 14319263 (Version 4)
Quarter: 2021Q4

REPORT INFORMATION
  Report Type: Spontaneous
  Country: ES (occurrence: ES)
  Receive Date: 20171222
  Receipt Date: 20211216
  Transmission Date: 20220304
  Serious: Yes (Hospitalization, Other)
  Sender: FDA-Public Use
  Company Number: ES-EMA-DD-20171129-MSHETTYP-151315

PATIENT
  Age: 87 Year
  Sex: Male
  Weight: 87 kg

DRUGS (44)
  1. ACYCLOVIR [Suspect]
     Active Substance: ACYCLOVIR
     Indication: Erythrodermic psoriasis
     Route: 042
     Dates: start: 20170810
  2. ACYCLOVIR [Suspect]
     Active Substance: ACYCLOVIR
     Route: 042
     Dates: start: 20170810
  3. ACYCLOVIR [Suspect]
     Active Substance: ACYCLOVIR
     Route: 042
     Dates: start: 20170810
  4. ALLOPURINOL [Suspect]
     Active Substance: ALLOPURINOL
     Indication: Hyperuricaemia
     Dosage: ON ALLOPURINOL FOR 6 YEARS
     Route: 065
     Dates: start: 2011
  5. ALLOPURINOL [Suspect]
     Active Substance: ALLOPURINOL
     Dosage: DOSAGE FORM: UNSPECIFIED, ON ALLOPURINOL FOR 6 YEARS
     Route: 065
     Dates: start: 20110101
  6. FLUCONAZOLE [Suspect]
     Active Substance: FLUCONAZOLE
     Indication: Product used for unknown indication
     Dosage: DOSAGE FORM: SOLUTION, ON ALLOPURINOL FOR 6 YEARS
     Route: 042
     Dates: start: 20170810
  7. METAMIZOLE MAGNESIUM [Suspect]
     Active Substance: METAMIZOLE MAGNESIUM
     Indication: Product used for unknown indication
     Dosage: DOSAGE FORM: UNSPECIFIED
     Route: 042
     Dates: start: 20170801
  8. METAMIZOLE MAGNESIUM [Suspect]
     Active Substance: METAMIZOLE MAGNESIUM
     Dosage: DOSAGE FORM: UNSPECIFIED
     Route: 042
     Dates: start: 20170801
  9. STELARA [Suspect]
     Active Substance: USTEKINUMAB
     Indication: Erythrodermic psoriasis
     Route: 058
     Dates: start: 20170803, end: 20170803
  10. STELARA [Suspect]
     Active Substance: USTEKINUMAB
     Indication: Psoriasis
     Dosage: 45 MG, BID
     Route: 058
     Dates: start: 20170803, end: 20170803
  11. STELARA [Suspect]
     Active Substance: USTEKINUMAB
     Dosage: 25 MG, QD, CAPSULE
     Route: 058
     Dates: start: 20170728, end: 20170728
  12. STELARA [Suspect]
     Active Substance: USTEKINUMAB
     Dosage: 25 MG, QD, CAPSULE
     Route: 058
     Dates: start: 20170728, end: 20170728
  13. CEFTRIAXONE [Suspect]
     Active Substance: CEFTRIAXONE
     Indication: Product used for unknown indication
     Dosage: DOSAGE FORM: UNSPECIFIED
     Route: 030
     Dates: start: 20170801, end: 20170812
  14. NEOTIGASON [Suspect]
     Active Substance: ACITRETIN
     Indication: Erythrodermic psoriasis
     Route: 065
     Dates: start: 20170728, end: 20170728
  15. NEOTIGASON [Suspect]
     Active Substance: ACITRETIN
     Route: 065
     Dates: start: 20170728, end: 20170728
  16. METAMIZOLE SODIUM [Suspect]
     Active Substance: METAMIZOLE SODIUM
     Indication: Product used for unknown indication
     Dosage: DOSAGE FORM: UNSPECIFIED, TOTAL 1200 MG ONCE A DAY
     Route: 042
     Dates: start: 201708
  17. ACYCLOVIR [Suspect]
     Active Substance: ACYCLOVIR
     Indication: Erythrodermic psoriasis
     Route: 058
     Dates: start: 20170810
  18. TAMSULOSIN HYDROCHLORIDE [Concomitant]
     Active Substance: TAMSULOSIN HYDROCHLORIDE
     Indication: Product used for unknown indication
  19. LANSOPRAZOLE [Concomitant]
     Active Substance: LANSOPRAZOLE
     Indication: Product used for unknown indication
     Dates: start: 20170401
  20. BETAMETHASONE DIPROPIONATE\CALCIPOTRIENE HYDRATE [Concomitant]
     Active Substance: BETAMETHASONE DIPROPIONATE\CALCIPOTRIENE HYDRATE
     Indication: Product used for unknown indication
     Route: 065
     Dates: start: 201704
  21. HERBALS\JUNIPERUS COMMUNIS WHOLE [Concomitant]
     Active Substance: HERBALS\JUNIPERUS COMMUNIS WHOLE
     Indication: Product used for unknown indication
     Dosage: DOSAGE FORM: UNSPECIFIED, BATHROOMS WITH JUNIPER OIL ONCE A DAY FOR 20 MINUTES.
  22. SIMVASTATIN [Concomitant]
     Active Substance: SIMVASTATIN
     Indication: Product used for unknown indication
  23. ACLIDINIUM BROMIDE [Concomitant]
     Active Substance: ACLIDINIUM BROMIDE
     Indication: Product used for unknown indication
     Dosage: DOSAGE FORM INHALATION, 1 INHALATION
     Route: 055
  24. ACLIDINIUM BROMIDE [Concomitant]
     Active Substance: ACLIDINIUM BROMIDE
     Dosage: DOSAGE FORM: INHALATION, 1 INHALATION
     Route: 055
  25. LORATADINE [Concomitant]
     Active Substance: LORATADINE
     Indication: Product used for unknown indication
     Route: 048
     Dates: start: 20170726
  26. LORATADINE [Concomitant]
     Active Substance: LORATADINE
     Route: 048
     Dates: start: 20170726
  27. BILASTINE [Concomitant]
     Active Substance: BILASTINE
     Indication: Product used for unknown indication
     Dosage: 20 MG,QD
     Dates: start: 20170726, end: 20170726
  28. BILASTINE [Concomitant]
     Active Substance: BILASTINE
     Dates: start: 20170726, end: 20170726
  29. ACETAMINOPHEN [Concomitant]
     Active Substance: ACETAMINOPHEN
     Indication: Product used for unknown indication
     Dosage: 650 MG,Q12H
  30. AUXINA A E [Concomitant]
     Indication: Product used for unknown indication
     Dosage: UNK
     Route: 048
     Dates: start: 201704, end: 20170726
  31. EUCERIN [Concomitant]
     Active Substance: ENSULIZOLE\EUCERIN\OCTINOXATE\OCTISALATE\TITANIUM DIOXIDE\ZINC OXIDE
     Indication: Product used for unknown indication
  32. PREDNISONE [Concomitant]
     Active Substance: PREDNISONE
     Indication: Product used for unknown indication
     Dates: start: 20170801, end: 20170801
  33. ACITRETIN [Concomitant]
     Active Substance: ACITRETIN
     Indication: Product used for unknown indication
     Dates: start: 20170728
  34. ACITRETIN [Concomitant]
     Active Substance: ACITRETIN
     Route: 065
     Dates: start: 20170728, end: 20170728
  35. FUROSEMIDE [Concomitant]
     Active Substance: FUROSEMIDE
     Indication: Product used for unknown indication
     Dosage: DOSAGE FORM: UNSPECIFIED, 1.5 (60 MG/ DAY)
     Dates: start: 20170802, end: 20170802
  36. ENALAPRIL [Concomitant]
     Active Substance: ENALAPRIL
     Indication: Product used for unknown indication
  37. SALMETEROL [Concomitant]
     Active Substance: SALMETEROL
     Indication: Product used for unknown indication
     Route: 055
  38. SALMETEROL [Concomitant]
     Active Substance: SALMETEROL
     Dosage: DOSAGE FORM: UNSPECIFIED, 1 INHALATION
     Route: 065
  39. ALLOPURINOL [Concomitant]
     Active Substance: ALLOPURINOL
     Indication: Product used for unknown indication
  40. ALDACTONE [Concomitant]
     Active Substance: SPIRONOLACTONE
     Indication: Product used for unknown indication
     Dates: end: 20170802
  41. SPIRONOLACTONE [Concomitant]
     Active Substance: SPIRONOLACTONE
     Indication: Product used for unknown indication
     Dosage: DOSAGE FORM: UNSPECIFIED, TOTAL 1200 MG ONCE A DAY
     Dates: start: 20170802
  42. BETAMETHASONE DIPROPIONATE\GENTAMICIN SULFATE [Concomitant]
     Active Substance: BETAMETHASONE DIPROPIONATE\GENTAMICIN SULFATE
     Indication: Product used for unknown indication
     Route: 061
  43. BETAMETHASONE DIPROPIONATE\GENTAMICIN SULFATE [Concomitant]
     Active Substance: BETAMETHASONE DIPROPIONATE\GENTAMICIN SULFATE
     Route: 061
  44. AZITHROMYCIN [Concomitant]
     Active Substance: AZITHROMYCIN
     Indication: Product used for unknown indication
     Dosage: DOSAGE FORM: UNSPECIFIED
     Dates: start: 20170812, end: 20170812

REACTIONS (3)
  - Toxic epidermal necrolysis [Recovered/Resolved]
  - Oral candidiasis [Recovering/Resolving]
  - Fungal infection [Recovering/Resolving]

NARRATIVE: CASE EVENT DATE: 20170101
